FAERS Safety Report 5215050-5 (Version None)
Quarter: 2007Q1

REPORT INFORMATION
  Report Type: 
  Country: None (occurrence: None)
  Receive Date: 20070122
  Receipt Date: 20060919
  Transmission Date: 20070707
  Serious: Yes (Other)
  Sender: FDA-Public Use
  Company Number: US-MERCK-0608USA05463

PATIENT
  Age: 81 Year
  Sex: Female
  Weight: 50 kg

DRUGS (7)
  1. PRIMIDONE [Concomitant]
     Route: 065
  2. ZOCOR [Suspect]
     Indication: BLOOD CHOLESTEROL INCREASED
     Route: 048
     Dates: end: 20060801
  3. K-DUR 10 [Concomitant]
     Indication: CARDIAC FAILURE CONGESTIVE
     Route: 048
  4. LASIX [Concomitant]
     Indication: CARDIAC FAILURE CONGESTIVE
     Route: 048
  5. COUMADIN [Concomitant]
     Indication: ATRIAL FIBRILLATION
     Route: 048
  6. DIAMOX [Concomitant]
     Route: 065
  7. EVISTA [Concomitant]
     Indication: OSTEOPOROSIS
     Route: 048

REACTIONS (2)
  - DEMENTIA [None]
  - EYE DISORDER [None]
